FAERS Safety Report 8104550-6 (Version None)
Quarter: 2012Q1

REPORT INFORMATION
  Report Type: 
  Country: None (occurrence: None)
  Receive Date: 20120201
  Receipt Date: 20120124
  Transmission Date: 20120608
  Serious: Yes (Hospitalization, Disabling)
  Sender: FDA-Public Use
  Company Number: US-MERCK-1104USA01065

PATIENT
  Age: 72 Year
  Sex: Female
  Weight: 68 kg

DRUGS (9)
  1. ALLEGRA [Concomitant]
     Indication: HYPERSENSITIVITY
     Route: 065
     Dates: start: 20030101, end: 20050101
  2. FOSAMAX [Suspect]
     Indication: OSTEOPENIA
     Route: 048
     Dates: start: 20030501, end: 20060701
  3. NABUMETONE [Concomitant]
     Indication: ARTHRITIS
     Route: 065
     Dates: start: 20000101, end: 20100101
  4. DITROPAN [Concomitant]
     Indication: HYPERTONIC BLADDER
     Route: 065
     Dates: start: 20010101
  5. FOSAMAX [Suspect]
     Route: 048
     Dates: start: 20080201, end: 20091113
  6. SYNTHROID [Concomitant]
     Indication: HYPOTHYROIDISM
     Route: 065
     Dates: start: 20010101
  7. FOSAMAX PLUS D [Suspect]
     Indication: OSTEOPENIA
     Route: 048
     Dates: start: 20060701, end: 20061201
  8. FOSAMAX [Suspect]
     Route: 048
     Dates: start: 20060701, end: 20061006
  9. FOSAMAX [Suspect]
     Indication: OSTEOPOROSIS
     Route: 048
     Dates: start: 20030501, end: 20060701

REACTIONS (37)
  - ABSCESS [None]
  - ADVERSE DRUG REACTION [None]
  - SPINAL OSTEOARTHRITIS [None]
  - DIZZINESS [None]
  - BLADDER DISORDER [None]
  - LUMBAR VERTEBRAL FRACTURE [None]
  - FACIAL BONES FRACTURE [None]
  - ORAL INFECTION [None]
  - CHEST PAIN [None]
  - ABSCESS JAW [None]
  - HAEMORRHAGIC ANAEMIA [None]
  - TOOTH INFECTION [None]
  - CONCUSSION [None]
  - HYPERLIPIDAEMIA [None]
  - TOOTH FRACTURE [None]
  - BACK PAIN [None]
  - CATARACT [None]
  - JAW DISORDER [None]
  - ANAEMIA [None]
  - RESPIRATORY DISTRESS [None]
  - PNEUMONIA [None]
  - OSTEOMYELITIS [None]
  - FALL [None]
  - BONE DISORDER [None]
  - OSTEONECROSIS OF JAW [None]
  - EMPYEMA [None]
  - SPONDYLOLISTHESIS [None]
  - SPINAL DISORDER [None]
  - ASTHMA [None]
  - GINGIVAL BLEEDING [None]
  - GASTROOESOPHAGEAL REFLUX DISEASE [None]
  - FISTULA DISCHARGE [None]
  - CERVICAL SPINAL STENOSIS [None]
  - TENDON RUPTURE [None]
  - SJOGREN'S SYNDROME [None]
  - ORAL DISORDER [None]
  - MUSCLE SPASMS [None]
